FAERS Safety Report 13393124 (Version 1)
Quarter: 2017Q1

REPORT INFORMATION
  Report Type: Spontaneous
  Country: US (occurrence: US)
  Receive Date: 20170331
  Receipt Date: 20170331
  Transmission Date: 20170429
  Serious: Yes (Hospitalization)
  Sender: FDA-Public Use
  Company Number: US-ELI_LILLY_AND_COMPANY-US201703011036

PATIENT
  Sex: Male

DRUGS (2)
  1. AXIRON [Suspect]
     Active Substance: TESTOSTERONE
     Dosage: UNK UNK, EACH EVENING
     Route: 065
     Dates: start: 2013
  2. AXIRON [Suspect]
     Active Substance: TESTOSTERONE
     Indication: PRODUCT USED FOR UNKNOWN INDICATION
     Dosage: UNK UNK, EACH MORNING
     Route: 065
     Dates: start: 2013

REACTIONS (7)
  - Hyperhidrosis [Unknown]
  - Psoriasis [Not Recovered/Not Resolved]
  - Joint range of motion decreased [Unknown]
  - Arthritis [Unknown]
  - Drug dose omission [Unknown]
  - Hot flush [Unknown]
  - Application site pain [Unknown]

NARRATIVE: CASE EVENT DATE: 2013
